FAERS Safety Report 24194556 (Version 2)
Quarter: 2025Q3

REPORT INFORMATION
  Report Type: Report from Study
  Country: JP (occurrence: JP)
  Receive Date: 20240809
  Receipt Date: 20250901
  Transmission Date: 20251021
  Serious: Yes (Hospitalization, Other)
  Sender: CHIESI
  Company Number: JP-AMRYT PHARMACEUTICALS DAC-AEGR006737

PATIENT
  Sex: Female

DRUGS (5)
  1. LOMITAPIDE [Suspect]
     Active Substance: LOMITAPIDE
     Indication: Type IIa hyperlipidaemia
  2. LOMITAPIDE [Suspect]
     Active Substance: LOMITAPIDE
     Dates: start: 20190918
  3. WARFARIN POTASSIUM [Suspect]
     Active Substance: WARFARIN POTASSIUM
     Indication: Muscle haemorrhage
     Dosage: 4 MILLIGRAM, QD
     Route: 048
     Dates: start: 20190710, end: 20190910
  4. WARFARIN POTASSIUM [Suspect]
     Active Substance: WARFARIN POTASSIUM
     Indication: Haematoma
  5. PEMAFIBRATE [Concomitant]
     Active Substance: PEMAFIBRATE
     Indication: Hypercholesterolaemia
     Dosage: 0.1 MILLIGRAM, QD
     Route: 048
     Dates: start: 20190612

REACTIONS (5)
  - Muscle haemorrhage [Recovered/Resolved]
  - Unevaluable event [Unknown]
  - Electrocardiogram T wave abnormal [Unknown]
  - Myalgia [Unknown]
  - Therapeutic product effect incomplete [Unknown]

NARRATIVE: CASE EVENT DATE: 20190101
